FAERS Safety Report 18153542 (Version 1)
Quarter: 2020Q3

REPORT INFORMATION
  Report Type: Report from Study
  Country: BR (occurrence: BR)
  Receive Date: 20200816
  Receipt Date: 20200816
  Transmission Date: 20201103
  Serious: Yes (Hospitalization, Other)
  Sender: FDA-Public Use
  Company Number: NVSC2020BR223123

PATIENT
  Sex: Male
  Weight: 52 kg

DRUGS (10)
  1. LOSARTAN. [Suspect]
     Active Substance: LOSARTAN
     Indication: PRODUCT USED FOR UNKNOWN INDICATION
     Dosage: 25 MG, BID (START MANY YEARS AGO BEFORE ENTRESTO)
     Route: 048
  2. SOMALGIN CARDIO [Concomitant]
     Active Substance: ASPIRIN\DIHYDROXYALUMINUM AMINOACETATE ANHYDROUS\MAGNESIUM CARBONATE
     Indication: CARDIAC DISORDER
     Dosage: 81 MG, QD,(TWO YEARS AGO)
     Route: 048
  3. LASIX [Concomitant]
     Active Substance: FUROSEMIDE
     Indication: SWELLING
     Dosage: 40 MG, QD (MANY YEARS AGO CAN^T REMEMBER WHEN)
     Route: 048
  4. SPIRIVA [Concomitant]
     Active Substance: TIOTROPIUM BROMIDE MONOHYDRATE
     Indication: DYSPNOEA
     Dosage: (2.5 MCG) QD, (MORE THAN 10 YEARS AGO)
     Route: 055
  5. ENTRESTO [Concomitant]
     Active Substance: SACUBITRIL\VALSARTAN
     Dosage: 1 UNK
     Route: 048
     Dates: start: 20200726
  6. BACTRIM [Concomitant]
     Active Substance: SULFAMETHOXAZOLE\TRIMETHOPRIM
     Indication: HIV INFECTION
     Dosage: 1 DF,( THREE TIMES A WEEK START DATE 3 YEARS AGO)
     Route: 048
  7. ENTRESTO [Concomitant]
     Active Substance: SACUBITRIL\VALSARTAN
     Indication: CARDIAC FAILURE
     Dosage: 1 DF, BID (STOP DATE? USED FOR ONE MONTH)
     Route: 048
     Dates: start: 202004
  8. SIMVASTATINA [Suspect]
     Active Substance: SIMVASTATIN
     Indication: ABDOMINAL DISCOMFORT
     Dosage: 20 MG, QD(START DATE ONE YEAR AGO)
     Route: 048
  9. LAMIVUDINE AND ZIDOVUDINE [Concomitant]
     Active Substance: LAMIVUDINE\ZIDOVUDINE
     Indication: HIV INFECTION
     Dosage: 1 DF, QD(START DATE THREE YEARS AGO)
     Route: 048
  10. SERETIDE [Concomitant]
     Active Substance: FLUTICASONE PROPIONATE\SALMETEROL XINAFOATE
     Indication: LUNG DISORDER
     Dosage: (25MCG/250MCG), BID(START DATE MORE THAN 10 YEARS AGO), INHALATION ON ORAL
     Route: 055

REACTIONS (11)
  - HIV infection [Not Recovered/Not Resolved]
  - Retching [Recovering/Resolving]
  - Lung disorder [Not Recovered/Not Resolved]
  - Diabetes mellitus [Recovering/Resolving]
  - Pneumonia [Recovered/Resolved]
  - Type 2 diabetes mellitus [Recovering/Resolving]
  - Peripheral swelling [Recovered/Resolved]
  - Tremor [Recovered/Resolved]
  - Decreased appetite [Recovering/Resolving]
  - Underweight [Not Recovered/Not Resolved]
  - Pneumonia [Recovered/Resolved]

NARRATIVE: CASE EVENT DATE: 2001
